FAERS Safety Report 5967483-7 (Version None)
Quarter: 2008Q4

REPORT INFORMATION
  Report Type: 
  Country: None (occurrence: None)
  Receive Date: 20081125
  Receipt Date: 20081119
  Transmission Date: 20090506
  Serious: Yes (Hospitalization, Other)
  Sender: FDA-Public Use
  Company Number: BR-PFIZER INC-2008098004

PATIENT
  Sex: Female

DRUGS (3)
  1. FRONTAL [Suspect]
     Indication: INSOMNIA
     Route: 048
  2. ATORVASTATIN CALCIUM [Suspect]
     Route: 048
  3. PRANDIN [Concomitant]
     Dates: start: 20060101

REACTIONS (2)
  - CARDIAC OPERATION [None]
  - DYSPNOEA [None]
